FAERS Safety Report 20012668 (Version 1)
Quarter: 2021Q4

REPORT INFORMATION
  Report Type: Report from Study
  Country: CA (occurrence: CA)
  Receive Date: 20211029
  Receipt Date: 20211029
  Transmission Date: 20220303
  Serious: Yes (Hospitalization)
  Sender: FDA-Public Use
  Company Number: CA-TAKEDA-2021TUS066565

PATIENT
  Age: 83 Year
  Sex: Male

DRUGS (2)
  1. VEDOLIZUMAB [Suspect]
     Active Substance: VEDOLIZUMAB
     Indication: Crohn^s disease
     Dosage: 300 MILLIGRAM
     Route: 042
     Dates: start: 20190417
  2. PREDNISONE [Concomitant]
     Active Substance: PREDNISONE
     Indication: Ankylosing spondylitis
     Dosage: UNK

REACTIONS (1)
  - Anaemia [Unknown]
